FAERS Safety Report 24463380 (Version 1)
Quarter: 2024Q4

REPORT INFORMATION
  Report Type: Report from Study
  Country: US (occurrence: US)
  Receive Date: 20241018
  Receipt Date: 20241018
  Transmission Date: 20250115
  Serious: No
  Sender: ROCHE
  Company Number: US-ROCHE-2742024

PATIENT
  Age: 62 Year
  Sex: Female
  Weight: 72.57 kg

DRUGS (25)
  1. XOLAIR [Suspect]
     Active Substance: OMALIZUMAB
     Indication: Idiopathic urticaria
     Dosage: XOLAIR 300 MG VIAL, TWO SHOTS, ONE IN EACH ARM
     Route: 058
  2. XOLAIR [Suspect]
     Active Substance: OMALIZUMAB
     Indication: Asthma
  3. XOLAIR [Suspect]
     Active Substance: OMALIZUMAB
     Indication: Urticaria
  4. XOLAIR [Suspect]
     Active Substance: OMALIZUMAB
     Indication: Chronic spontaneous urticaria
  5. FLONASE [Concomitant]
     Active Substance: FLUTICASONE PROPIONATE
  6. ASTELIN [Concomitant]
     Active Substance: AZELASTINE HYDROCHLORIDE
  7. SINGULAIR [Concomitant]
     Active Substance: MONTELUKAST SODIUM
  8. CROMOLYN [Concomitant]
     Active Substance: CROMOLYN
  9. OXYCODONE [Concomitant]
     Active Substance: OXYCODONE
  10. FLEXERIL [Concomitant]
     Active Substance: CYCLOBENZAPRINE HYDROCHLORIDE
  11. ADDERALL XR [Concomitant]
     Active Substance: AMPHETAMINE ASPARTATE\AMPHETAMINE SULFATE\DEXTROAMPHETAMINE SACCHARATE\DEXTROAMPHETAMINE SULFATE
  12. TEMAZEPAM [Concomitant]
     Active Substance: TEMAZEPAM
  13. VISTARIL [Concomitant]
     Active Substance: HYDROXYZINE PAMOATE
  14. LYRICA [Concomitant]
     Active Substance: PREGABALIN
  15. RAMIPRIL [Concomitant]
     Active Substance: RAMIPRIL
  16. LEVOTHYROXINE [Concomitant]
     Active Substance: LEVOTHYROXINE
  17. DESLORATADINE [Concomitant]
     Active Substance: DESLORATADINE
  18. FAMOTIDINE [Concomitant]
     Active Substance: FAMOTIDINE
  19. MOBIC [Concomitant]
     Active Substance: MELOXICAM
  20. AMMONIUM LACTATE [Concomitant]
     Active Substance: AMMONIUM LACTATE
  21. FLONASE [Concomitant]
     Active Substance: FLUTICASONE PROPIONATE
  22. AZELASTINE [Concomitant]
     Active Substance: AZELASTINE
  23. PROVENTIL [Concomitant]
     Active Substance: ALBUTEROL
  24. TRIAMCINOLONE [Concomitant]
     Active Substance: TRIAMCINOLONE
  25. VALTREX [Concomitant]
     Active Substance: VALACYCLOVIR HYDROCHLORIDE

REACTIONS (6)
  - Amnesia [Recovered/Resolved]
  - Skeletal injury [Unknown]
  - Yawning [Unknown]
  - Fatigue [Unknown]
  - Sciatic nerve neuropathy [Unknown]
  - Animal bite [Unknown]

NARRATIVE: CASE EVENT DATE: 20231101
